FAERS Safety Report 7629196-5 (Version None)
Quarter: 2011Q3

REPORT INFORMATION
  Report Type: 
  Country: None (occurrence: None)
  Receive Date: 20110722
  Receipt Date: 20110712
  Transmission Date: 20111222
  Serious: No
  Sender: FDA-Public Use
  Company Number: PHHY2011DE49079

PATIENT
  Sex: Female

DRUGS (3)
  1. TASIGNA [Suspect]
     Indication: CHRONIC MYELOID LEUKAEMIA
     Dosage: 600 MG PER DAY
     Route: 048
     Dates: start: 20110527, end: 20110603
  2. AMLODIPINE [Concomitant]
     Indication: HYPERTENSION
     Dosage: 10 UNK, UNK
     Route: 048
  3. LEVOTHYROXINE SODIUM [Concomitant]
     Dosage: 100 UG, UNK
     Route: 048

REACTIONS (4)
  - PRURITUS [None]
  - MYALGIA [None]
  - RASH [None]
  - VISUAL IMPAIRMENT [None]
